FAERS Safety Report 25076465 (Version 1)
Quarter: 2025Q1

REPORT INFORMATION
  Report Type: Spontaneous
  Country: CN (occurrence: CN)
  Receive Date: 20250313
  Receipt Date: 20250313
  Transmission Date: 20250409
  Serious: Yes (Hospitalization)
  Sender: BEIGENE
  Company Number: CN-BEIGENE-BGN-2025-003834

PATIENT
  Age: 69 Year
  Weight: 49 kg

DRUGS (18)
  1. TISLELIZUMAB [Suspect]
     Active Substance: TISLELIZUMAB
     Indication: Metastatic lymphoma
     Route: 041
  2. TISLELIZUMAB [Suspect]
     Active Substance: TISLELIZUMAB
     Indication: Oesophageal neoplasm
  3. TISLELIZUMAB [Suspect]
     Active Substance: TISLELIZUMAB
  4. TISLELIZUMAB [Suspect]
     Active Substance: TISLELIZUMAB
     Route: 041
  5. TISLELIZUMAB [Suspect]
     Active Substance: TISLELIZUMAB
     Route: 041
  6. TISLELIZUMAB [Suspect]
     Active Substance: TISLELIZUMAB
  7. TISLELIZUMAB [Suspect]
     Active Substance: TISLELIZUMAB
  8. TISLELIZUMAB [Suspect]
     Active Substance: TISLELIZUMAB
     Route: 041
  9. CARBOPLATIN [Concomitant]
     Active Substance: CARBOPLATIN
     Indication: Metastatic lymphoma
     Dosage: 400 MILLIGRAM, Q3WK
  10. CARBOPLATIN [Concomitant]
     Active Substance: CARBOPLATIN
     Indication: Oesophageal neoplasm
     Dosage: 400 MILLIGRAM, Q3WK
     Route: 041
  11. CARBOPLATIN [Concomitant]
     Active Substance: CARBOPLATIN
     Dosage: 350 MILLIGRAM, Q3WK(CYCLE 2)
     Route: 041
  12. CARBOPLATIN [Concomitant]
     Active Substance: CARBOPLATIN
     Dosage: 350 MILLIGRAM, Q3WK(CYCLE 2)
  13. CARBOPLATIN [Concomitant]
     Active Substance: CARBOPLATIN
     Dosage: 350 MILLIGRAM, Q3WK(CYCLE 3)
     Route: 041
  14. CARBOPLATIN [Concomitant]
     Active Substance: CARBOPLATIN
     Dosage: 350 MILLIGRAM, Q3WK(CYCLE 3)
  15. PACLITAXEL [Concomitant]
     Active Substance: PACLITAXEL
     Indication: Metastatic lymphoma
     Dosage: 300 MILLIGRAM, Q3WK
  16. PACLITAXEL [Concomitant]
     Active Substance: PACLITAXEL
     Indication: Oesophageal neoplasm
     Dosage: 300 MILLIGRAM, Q3WK
     Route: 041
  17. PACLITAXEL [Concomitant]
     Active Substance: PACLITAXEL
     Dosage: 300 MILLIGRAM, Q3WK
  18. PACLITAXEL [Concomitant]
     Active Substance: PACLITAXEL
     Dosage: 300 MILLIGRAM, Q3WK
     Route: 041

REACTIONS (1)
  - Myelosuppression [Recovering/Resolving]
